FAERS Safety Report 5312420-1 (Version None)
Quarter: 2007Q2

REPORT INFORMATION
  Report Type: 
  Country: None (occurrence: None)
  Receive Date: 20070430
  Receipt Date: 20061031
  Transmission Date: 20071010
  Serious: No
  Sender: FDA-Public Use
  Company Number: 2006UW20915

PATIENT
  Age: 69 Year
  Sex: Female
  Weight: 77.1 kg

DRUGS (7)
  1. NEXIUM [Suspect]
     Indication: GASTROOESOPHAGEAL REFLUX DISEASE
     Route: 048
     Dates: start: 20060701
  2. NEXIUM [Suspect]
     Indication: OESOPHAGEAL DISORDER
     Route: 048
     Dates: start: 20060701
  3. SYNTHROID [Concomitant]
  4. TOPROL-XL [Concomitant]
  5. DYAZIDE [Concomitant]
  6. CELEBREX [Concomitant]
  7. TAMOXIFEN CITRATE [Concomitant]
     Route: 048
     Dates: end: 20061001

REACTIONS (2)
  - ALOPECIA [None]
  - ONYCHOCLASIS [None]
